FAERS Safety Report 7639045 (Version 4)
Quarter: 2013Q1

REPORT INFORMATION
  Report Type: Report from Study
  Country: LV (occurrence: LV)
  Receive Date: 20101025
  Receipt Date: 20130313
  Transmission Date: 20140127
  Serious: Yes (Death, Hospitalization)
  Sender: FDA-Public Use
  Company Number: PHHO2010LV15935

PATIENT
  Age: 75 Year
  Sex: Male
  Weight: 64 kg

DRUGS (2)
  1. ACZ885 [Suspect]
     Indication: GOUT
     Dosage: 150MG
     Route: 058
     Dates: start: 20100819
  2. SERETIDE [Concomitant]
     Indication: CHRONIC OBSTRUCTIVE PULMONARY DISEASE
     Dosage: UNK

REACTIONS (1)
  - Pneumonia [Fatal]
